FAERS Safety Report 13659021 (Version 1)
Quarter: 2017Q2

REPORT INFORMATION
  Report Type: Spontaneous
  Country: US (occurrence: US)
  Receive Date: 20170615
  Receipt Date: 20170615
  Transmission Date: 20170830
  Serious: Yes (Hospitalization)
  Sender: FDA-Public Use
  Company Number: None

PATIENT
  Age: 29 Year
  Sex: Female

DRUGS (5)
  1. MAPAP [Concomitant]
     Active Substance: ACETAMINOPHEN
  2. PROGESTERONE. [Concomitant]
     Active Substance: PROGESTERONE
  3. MAKENA [Suspect]
     Active Substance: HYDROXYPROGESTERONE CAPROATE
     Indication: PREGNANCY
     Route: 058
     Dates: start: 20170504
  4. HYDROXYZ PAM [Concomitant]
     Active Substance: HYDROXYZINE PAMOATE
  5. LEVOTHYROXIN [Concomitant]
     Active Substance: LEVOTHYROXINE

REACTIONS (1)
  - Hospitalisation [None]

NARRATIVE: CASE EVENT DATE: 20170605
